FAERS Safety Report 16217564 (Version 2)
Quarter: 2019Q2

REPORT INFORMATION
  Report Type: Spontaneous
  Country: US (occurrence: US)
  Receive Date: 20190419
  Receipt Date: 20190625
  Transmission Date: 20190711
  Serious: No
  Sender: FDA-Public Use
  Company Number: US-PFIZER INC-2019164957

PATIENT
  Age: 70 Year
  Sex: Female

DRUGS (1)
  1. EUCRISA [Suspect]
     Active Substance: CRISABOROLE
     Indication: PERIORAL DERMATITIS
     Dosage: APPLY TO AFFECTED AREAS DAILY
     Route: 061
     Dates: start: 201812

REACTIONS (3)
  - Drug ineffective [Unknown]
  - Pruritus [Unknown]
  - Burning sensation [Unknown]
